FAERS Safety Report 18732344 (Version 13)
Quarter: 2022Q1

REPORT INFORMATION
  Report Type: Report from Study
  Country: CA (occurrence: CA)
  Receive Date: 20210112
  Receipt Date: 20220128
  Transmission Date: 20220423
  Serious: Yes (Other)
  Sender: FDA-Public Use
  Company Number: CA-TAKEDA-2020TUS027932

PATIENT
  Age: 58 Year
  Sex: Male

DRUGS (4)
  1. VEDOLIZUMAB [Suspect]
     Active Substance: VEDOLIZUMAB
     Indication: Colitis ulcerative
     Dosage: 300 MILLIGRAM
     Route: 042
     Dates: start: 20191008
  2. VEDOLIZUMAB [Suspect]
     Active Substance: VEDOLIZUMAB
     Dosage: 300 MILLIGRAM, Q4WEEKS
     Route: 042
     Dates: start: 20210125
  3. PERINDOPRIL [Suspect]
     Active Substance: PERINDOPRIL
     Indication: Blood pressure measurement
     Dosage: UNK
     Route: 065
  4. PREDNISONE [Concomitant]
     Active Substance: PREDNISONE
     Dosage: UNK

REACTIONS (28)
  - Colitis ulcerative [Unknown]
  - Helicobacter infection [Unknown]
  - Diarrhoea haemorrhagic [Unknown]
  - Systemic infection [Unknown]
  - Gastrointestinal haemorrhage [Unknown]
  - Vessel puncture site swelling [Unknown]
  - Vessel puncture site bruise [Unknown]
  - Infusion related reaction [Unknown]
  - Irritable bowel syndrome [Unknown]
  - Tinnitus [Unknown]
  - Confusional state [Unknown]
  - Visual impairment [Unknown]
  - Balance disorder [Unknown]
  - Tendon rupture [Unknown]
  - Lymphocytosis [Unknown]
  - Platelet count increased [Unknown]
  - Blood glucose increased [Unknown]
  - Blood potassium increased [Unknown]
  - Anaemia [Not Recovered/Not Resolved]
  - Poor venous access [Unknown]
  - Infusion site bruising [Unknown]
  - Blood electrolytes abnormal [Unknown]
  - Oral candidiasis [Unknown]
  - Haemorrhoids [Unknown]
  - Genital candidiasis [Unknown]
  - Back pain [Unknown]
  - Product dose omission issue [Unknown]
  - Off label use [Unknown]

NARRATIVE: CASE EVENT DATE: 20210125
